FAERS Safety Report 16716282 (Version 2)
Quarter: 2019Q3

REPORT INFORMATION
  Report Type: Report from Study
  Country: US (occurrence: US)
  Receive Date: 20190819
  Receipt Date: 20190828
  Transmission Date: 20191005
  Serious: Yes (Hospitalization, Other)
  Sender: FDA-Public Use
  Company Number: US-AMGEN-USACT2019130202

PATIENT
  Age: 74 Year
  Sex: Male

DRUGS (23)
  1. DARBEPOETIN ALFA [Suspect]
     Active Substance: DARBEPOETIN ALFA
     Indication: ANAEMIA
     Dosage: 60 MICROGRAM, QWK
     Route: 058
     Dates: start: 20180521, end: 20180701
  2. ZEMPLAR [Concomitant]
     Active Substance: PARICALCITOL
     Dosage: UNK
     Dates: start: 20181221, end: 20190703
  3. LIQUACEL [Concomitant]
     Dosage: UNK
     Dates: start: 20190503
  4. NEPHROCAPS [ASCORBIC ACID;BIOTIN;COLECALCIFEROL;CYANOCOBALAMIN;FOLIC A [Concomitant]
     Dosage: UNK
     Dates: start: 20140722
  5. PHOSLO [Concomitant]
     Active Substance: CALCIUM ACETATE
     Dosage: UNK
     Dates: start: 20170316
  6. VANCOMYCIN [Concomitant]
     Active Substance: VANCOMYCIN
     Dosage: UNK
     Dates: start: 20190607, end: 20190612
  7. DARBEPOETIN ALFA [Suspect]
     Active Substance: DARBEPOETIN ALFA
     Dosage: 25 MICROGRAM, QWK
     Route: 058
     Dates: start: 20190506, end: 20190512
  8. DARBEPOETIN ALFA [Suspect]
     Active Substance: DARBEPOETIN ALFA
     Dosage: 40 MICROGRAM, QWK
     Route: 058
     Dates: start: 20190513, end: 20190609
  9. LEXAPRO [Concomitant]
     Active Substance: ESCITALOPRAM OXALATE
     Dosage: UNK
     Dates: start: 20190213
  10. DARBEPOETIN ALFA [Suspect]
     Active Substance: DARBEPOETIN ALFA
     Dosage: 30 MICROGRAM, QWK
     Route: 058
     Dates: start: 20180910, end: 20181007
  11. DARBEPOETIN ALFA [Suspect]
     Active Substance: DARBEPOETIN ALFA
     Dosage: 25 MICROGRAM, QWK
     Route: 058
     Dates: start: 20181105, end: 20181202
  12. DARBEPOETIN ALFA [Suspect]
     Active Substance: DARBEPOETIN ALFA
     Dosage: 40 MICROGRAM, QWK
     Route: 058
     Dates: start: 20181203, end: 20190106
  13. ASPIRIN [ACETYLSALICYLIC ACID] [Concomitant]
     Active Substance: ASPIRIN
     Dosage: UNK
     Dates: start: 20141115
  14. NEXIUM [Concomitant]
     Active Substance: ESOMEPRAZOLE MAGNESIUM
     Dosage: UNK
     Dates: start: 20150721
  15. ZYRTEC [Concomitant]
     Active Substance: CETIRIZINE HYDROCHLORIDE
     Dosage: UNK
     Dates: start: 20161101, end: 20190619
  16. LIPITOR [Concomitant]
     Active Substance: ATORVASTATIN CALCIUM
     Dosage: UNK
     Dates: start: 20180409, end: 20190619
  17. MANNITOL. [Concomitant]
     Active Substance: MANNITOL
     Dosage: UNK
     Dates: start: 20190607, end: 20190607
  18. DARBEPOETIN ALFA [Suspect]
     Active Substance: DARBEPOETIN ALFA
     Dosage: 40 MICROGRAM, QWK
     Route: 058
     Dates: start: 20180716, end: 20180909
  19. DARBEPOETIN ALFA [Suspect]
     Active Substance: DARBEPOETIN ALFA
     Dosage: 40 MICROGRAM, QWK
     Route: 058
     Dates: start: 20190128, end: 20190324
  20. COZAAR [Concomitant]
     Active Substance: LOSARTAN POTASSIUM
     Dosage: UNK
     Dates: start: 20180414, end: 20190619
  21. MIRALAX [Concomitant]
     Active Substance: POLYETHYLENE GLYCOL 3350
     Dosage: UNK
     Dates: start: 20181103, end: 20190619
  22. LANTUS [Concomitant]
     Active Substance: INSULIN GLARGINE
     Dosage: UNK
     Dates: start: 20190427, end: 20190612
  23. DARBEPOETIN ALFA [Suspect]
     Active Substance: DARBEPOETIN ALFA
     Dosage: 40 MICROGRAM, QWK
     Route: 058
     Dates: start: 20190429, end: 20190505

REACTIONS (2)
  - Lacunar infarction [Recovered/Resolved]
  - Muscular weakness [Recovered/Resolved]

NARRATIVE: CASE EVENT DATE: 20190613
